FAERS Safety Report 4339324-5 (Version None)
Quarter: 2004Q2

REPORT INFORMATION
  Report Type: 
  Country: None (occurrence: None)
  Receive Date: 20040415
  Receipt Date: 20040405
  Transmission Date: 20050107
  Serious: Yes (Hospitalization)
  Sender: FDA-Public Use
  Company Number: 200411427FR

PATIENT
  Age: 76 Year
  Sex: Female

DRUGS (3)
  1. LASILIX SPECIAL [Suspect]
     Route: 048
     Dates: start: 19990615, end: 20040228
  2. HYPERIUM 1 MG [Concomitant]
     Route: 048
     Dates: start: 19990615, end: 20040228
  3. SOTALEX [Suspect]
     Route: 048
     Dates: start: 19990615, end: 20040228

REACTIONS (7)
  - HAEMOPTYSIS [None]
  - HYPOKALAEMIA [None]
  - LUNG DISORDER [None]
  - NEPHROANGIOSCLEROSIS [None]
  - PERITONEAL DIALYSIS [None]
  - SYNCOPE [None]
  - TORSADE DE POINTES [None]
